FAERS Safety Report 13114003 (Version 3)
Quarter: 2017Q1

REPORT INFORMATION
  Report Type: Report from Study
  Country: US (occurrence: US)
  Receive Date: 20170113
  Receipt Date: 20170217
  Transmission Date: 20170428
  Serious: Yes (Hospitalization)
  Sender: FDA-Public Use
  Company Number: US-JNJFOC-20161208853

PATIENT
  Sex: Male

DRUGS (3)
  1. POTASSIUM CHLORIDE. [Concomitant]
     Active Substance: POTASSIUM CHLORIDE
  2. IMBRUVICA [Suspect]
     Active Substance: IBRUTINIB
     Indication: CHRONIC LYMPHOCYTIC LEUKAEMIA
     Route: 048
  3. IMBRUVICA [Suspect]
     Active Substance: IBRUTINIB
     Indication: CHRONIC LYMPHOCYTIC LEUKAEMIA
     Route: 048

REACTIONS (21)
  - Hernia [Unknown]
  - Renal artery occlusion [Not Recovered/Not Resolved]
  - Pain [Not Recovered/Not Resolved]
  - Dysphagia [Not Recovered/Not Resolved]
  - Penile swelling [Recovering/Resolving]
  - Lymphadenopathy [Not Recovered/Not Resolved]
  - Heart rate increased [Unknown]
  - Lip pain [Not Recovered/Not Resolved]
  - Dry skin [Recovering/Resolving]
  - Local swelling [Recovering/Resolving]
  - Off label use [Unknown]
  - Blister [Not Recovered/Not Resolved]
  - Incorrect dose administered [Unknown]
  - Stomatitis [Not Recovered/Not Resolved]
  - Hypertension [Not Recovered/Not Resolved]
  - Skin exfoliation [Recovering/Resolving]
  - Myalgia [Not Recovered/Not Resolved]
  - Rash macular [Not Recovered/Not Resolved]
  - Peripheral swelling [Not Recovered/Not Resolved]
  - Rash [Recovering/Resolving]
  - Angina bullosa haemorrhagica [Not Recovered/Not Resolved]
